FAERS Safety Report 14105630 (Version 1)
Quarter: 2017Q4

REPORT INFORMATION
  Report Type: Spontaneous
  Country: US (occurrence: US)
  Receive Date: 20171018
  Receipt Date: 20171018
  Transmission Date: 20180321
  Serious: No
  Sender: FDA-Public Use
  Company Number: US-PRESTIGE BRANDS -2030560

PATIENT
  Sex: Female

DRUGS (1)
  1. MONISTAT 1 COMBINATION PACK [Suspect]
     Active Substance: MICONAZOLE NITRATE
     Indication: VULVOVAGINAL MYCOTIC INFECTION
     Route: 067
     Dates: start: 20170701, end: 20170701

REACTIONS (7)
  - Vulvovaginal burning sensation [Unknown]
  - Rash [Unknown]
  - Vulvovaginal inflammation [Unknown]
  - Vaginal disorder [Unknown]
  - Vulvovaginal swelling [Unknown]
  - Condition aggravated [Unknown]
  - Scar [None]

NARRATIVE: CASE EVENT DATE: 20170701
